FAERS Safety Report 4968024-3 (Version None)
Quarter: 2006Q2

REPORT INFORMATION
  Report Type: 
  Country: None (occurrence: None)
  Receive Date: 20060410
  Receipt Date: 20060310
  Transmission Date: 20061013
  Serious: Yes (Other)
  Sender: FDA-Public Use
  Company Number: PHEH2006US03315

PATIENT
  Sex: Male

DRUGS (4)
  1. LITHIUM CARBONATE [Concomitant]
  2. PAXIL CR [Suspect]
     Indication: DEPRESSION
     Dosage: 37.5 MG, UNK
     Route: 048
  3. PAXIL CR [Suspect]
     Dosage: 37.5 MG, UNK
     Route: 048
  4. TEGRETOL [Suspect]
     Indication: CONVULSION

REACTIONS (1)
  - DEPRESSION [None]
